FAERS Safety Report 21914646 (Version 1)
Quarter: 2023Q1

REPORT INFORMATION
  Report Type: Spontaneous
  Country: ES (occurrence: ES)
  Receive Date: 20230126
  Receipt Date: 20230126
  Transmission Date: 20230417
  Serious: Yes (Other)
  Sender: FDA-Public Use
  Company Number: ES-GLAXOSMITHKLINE-ES2022EME196874

PATIENT
  Sex: Male

DRUGS (4)
  1. AMOXICILLIN [Suspect]
     Active Substance: AMOXICILLIN
     Indication: Product used for unknown indication
     Dosage: 9 DOSAGE FORM, ONCE A DAY(3 DF, TID (875 MG))
     Route: 065
  2. ALBENDAZOLE [Suspect]
     Active Substance: ALBENDAZOLE
     Indication: Fasciolopsiasis
     Dosage: 1 DOSAGE FORM, ONCE A DAY(TWO DOSES OF THE MEDICATION (ONE DOSE PER DAY, ON TWO CONSECUTIVE DAYS))
     Route: 065
  3. TRILOMBRIN [Concomitant]
     Indication: Product used for unknown indication
     Dosage: UNK
     Route: 065
  4. MEBENDAZOLE [Concomitant]
     Active Substance: MEBENDAZOLE
     Indication: Product used for unknown indication
     Dosage: 20 MILLIGRAM
     Route: 065

REACTIONS (6)
  - Parasitic gastroenteritis [Unknown]
  - Anal fissure [Unknown]
  - Gastrointestinal disorder [Unknown]
  - Drug ineffective [Unknown]
  - Product use issue [Unknown]
  - Extra dose administered [Unknown]
